FAERS Safety Report 7413245-3 (Version None)
Quarter: 2011Q2

REPORT INFORMATION
  Report Type: 
  Country: None (occurrence: None)
  Receive Date: 20110405
  Receipt Date: 20110317
  Transmission Date: 20111010
  Serious: Yes (Hospitalization, Other)
  Sender: FDA-Public Use
  Company Number: JPI-P-014240

PATIENT
  Age: 50 Year
  Sex: Female

DRUGS (2)
  1. XYREM [Suspect]
     Indication: NARCOLEPSY
     Dosage: 4.5 GM (2.25 GM, 2 IN 1 D), ORAL, TITRATING DOSE, ORAL, 9 GM (4.5 GM, 2 I N1 D), ORAL
     Route: 048
     Dates: start: 20110107
  2. XYREM [Suspect]
     Indication: NARCOLEPSY
     Dosage: 4.5 GM (2.25 GM, 2 IN 1 D), ORAL, TITRATING DOSE, ORAL, 9 GM (4.5 GM, 2 I N1 D), ORAL
     Route: 048
     Dates: start: 20100726

REACTIONS (4)
  - FALL [None]
  - HEART RATE DECREASED [None]
  - ANKLE FRACTURE [None]
  - SYNCOPE [None]
